FAERS Safety Report 4286005-2 (Version None)
Quarter: 2004Q1

REPORT INFORMATION
  Report Type: 
  Country: None (occurrence: None)
  Receive Date: 20040203
  Receipt Date: 20040121
  Transmission Date: 20041129
  Serious: Yes (Hospitalization)
  Sender: FDA-Public Use
  Company Number: 2003024095

PATIENT
  Age: 59 Year
  Sex: Male

DRUGS (1)
  1. DOXAZOSIN MESYLATE [Suspect]
     Indication: BENIGN PROSTATIC HYPERPLASIA
     Dosage: 4 MG (DAILY), ORAL
     Route: 048
     Dates: start: 20011001, end: 20030801

REACTIONS (2)
  - MICTURITION DISORDER [None]
  - PROSTATIC DISORDER [None]
